FAERS Safety Report 4903958-7 (Version None)
Quarter: 2006Q1

REPORT INFORMATION
  Report Type: 
  Country: None (occurrence: None)
  Receive Date: 20060208
  Receipt Date: 20050802
  Transmission Date: 20060701
  Serious: No
  Sender: FDA-Public Use
  Company Number: US-GLAXOSMITHKLINE-A0568643A

PATIENT
  Age: 36 Year
  Sex: Female

DRUGS (7)
  1. PAROXETINE HCL [Suspect]
     Indication: DEPRESSION
     Dosage: 40MG PER DAY
     Route: 048
     Dates: start: 20050727
  2. ORTHO-NOVUM 7/7/7-21 [Concomitant]
  3. ALLEGRA [Concomitant]
  4. TRIAMTERENE [Concomitant]
  5. CHOLESTYRAMINE [Concomitant]
  6. AMBIEN [Concomitant]
  7. PRILOSEC [Concomitant]

REACTIONS (1)
  - DEPRESSION [None]
